FAERS Safety Report 12906331 (Version 1)
Quarter: 2016Q4

REPORT INFORMATION
  Report Type: Other
  Country: FR (occurrence: FR)
  Receive Date: 20161103
  Receipt Date: 20161103
  Transmission Date: 20170207
  Serious: Yes (Hospitalization, Other)
  Sender: FDA-Public Use
  Company Number: FR-ASTELLAS-2016US042978

PATIENT
  Age: 87 Year
  Sex: Male

DRUGS (3)
  1. XTANDI [Suspect]
     Active Substance: ENZALUTAMIDE
     Indication: PROSTATE CANCER
     Dosage: 2 DF (40 MG), ONCE DAILY (AT NOON)
     Route: 048
     Dates: start: 20160801
  2. MACROGOL [Concomitant]
     Active Substance: POLYETHYLENE GLYCOLS
     Indication: CONSTIPATION
     Dosage: UNK UNK, UNKNOWN FREQ.
     Route: 065
  3. ENANTONE LP [Concomitant]
     Active Substance: LEUPROLIDE ACETATE
     Indication: PRODUCT USED FOR UNKNOWN INDICATION
     Dosage: 11.25 MG (48600 MG), ONCE EVERY 3 MONTHS
     Route: 058
     Dates: start: 2002

REACTIONS (8)
  - Gait disturbance [Unknown]
  - Arthralgia [Unknown]
  - Vestibular disorder [Unknown]
  - Osteoarthritis [Unknown]
  - Fall [Unknown]
  - Fall [Unknown]
  - Gait disturbance [Unknown]
  - Oedema peripheral [Unknown]

NARRATIVE: CASE EVENT DATE: 201608
